FAERS Safety Report 8477396-7 (Version None)
Quarter: 2012Q2

REPORT INFORMATION
  Report Type: 
  Country: None (occurrence: None)
  Receive Date: 20120629
  Receipt Date: 20120626
  Transmission Date: 20120825
  Serious: Yes (Death, Other)
  Sender: FDA-Public Use
  Company Number: AU-B.I. PHARMACEUTICALS,INC./RIDGEFIELD-2012-AU-00194AU

PATIENT
  Sex: Male

DRUGS (11)
  1. OSTEVIT D [Concomitant]
  2. PROGOUT [Concomitant]
  3. COLGOUT [Concomitant]
  4. UREMIDE [Concomitant]
  5. PRADAXA [Suspect]
     Indication: CEREBROVASCULAR ACCIDENT PROPHYLAXIS
     Dosage: 220 MG
     Dates: start: 20111111
  6. ATACAND [Concomitant]
  7. CALTRATE PLUS D [Concomitant]
  8. LANOXIN [Concomitant]
  9. ACETAMINOPHEN [Concomitant]
  10. SPIRIVA [Concomitant]
  11. PRADAXA [Suspect]
     Indication: ATRIAL FIBRILLATION

REACTIONS (2)
  - PNEUMONIA [None]
  - LUNG NEOPLASM MALIGNANT [None]
